FAERS Safety Report 25338813 (Version 2)
Quarter: 2025Q2

REPORT INFORMATION
  Report Type: Spontaneous
  Country: US (occurrence: US)
  Receive Date: 20250520
  Receipt Date: 20250603
  Transmission Date: 20250716
  Serious: No
  Sender: ABBVIE
  Company Number: US-ABBVIE-6281935

PATIENT
  Age: 73 Year
  Sex: Male

DRUGS (2)
  1. LASTACAFT [Suspect]
     Active Substance: ALCAFTADINE
     Indication: Lacrimation increased
     Route: 047
     Dates: start: 202505, end: 202505
  2. LASTACAFT [Suspect]
     Active Substance: ALCAFTADINE
     Indication: Lacrimation increased
     Route: 047

REACTIONS (3)
  - Expired product administered [Not Recovered/Not Resolved]
  - Product dispensing error [Unknown]
  - Eye irritation [Recovered/Resolved]

NARRATIVE: CASE EVENT DATE: 20250501
